FAERS Safety Report 21555609 (Version 2)
Quarter: 2023Q1

REPORT INFORMATION
  Report Type: Report from Study
  Country: US (occurrence: US)
  Receive Date: 20221104
  Receipt Date: 20230201
  Transmission Date: 20230418
  Serious: No
  Sender: FDA-Public Use
  Company Number: US-ABBVIE-21K-163-4052395-00

PATIENT
  Sex: Female

DRUGS (7)
  1. HUMIRA [Suspect]
     Active Substance: ADALIMUMAB
     Indication: Ankylosing spondylitis
     Route: 058
     Dates: start: 20210614
  2. HUMIRA [Suspect]
     Active Substance: ADALIMUMAB
     Route: 058
     Dates: start: 2021, end: 2021
  3. HUMIRA [Suspect]
     Active Substance: ADALIMUMAB
     Indication: Ankylosing spondylitis
     Route: 058
     Dates: start: 20210614
  4. HUMIRA [Suspect]
     Active Substance: ADALIMUMAB
     Route: 058
     Dates: start: 20210614
  5. MODERNA COVID-19 VACCINE [Concomitant]
     Active Substance: ELASOMERAN
     Indication: COVID-19 immunisation
     Dosage: TIME INTERVAL: 1 TOTAL: ONE, ONE, ONCE
     Route: 030
  6. TYLENOL [Concomitant]
     Active Substance: ACETAMINOPHEN
     Indication: Product used for unknown indication
  7. CELEBREX [Concomitant]
     Active Substance: CELECOXIB
     Indication: Product used for unknown indication

REACTIONS (24)
  - Cough [Not Recovered/Not Resolved]
  - Maternal exposure during pregnancy [Unknown]
  - Live birth [Unknown]
  - Mobility decreased [Recovered/Resolved]
  - Dysstasia [Not Recovered/Not Resolved]
  - Joint range of motion decreased [Recovered/Resolved]
  - Loss of personal independence in daily activities [Recovering/Resolving]
  - Joint swelling [Unknown]
  - Blister [Recovered/Resolved]
  - Pruritus [Recovered/Resolved]
  - Injection site vesicles [Recovered/Resolved]
  - Vomiting [Recovering/Resolving]
  - Nausea [Unknown]
  - Headache [Unknown]
  - Injection site pruritus [Not Recovered/Not Resolved]
  - Injection site erythema [Recovering/Resolving]
  - Back pain [Unknown]
  - Nasopharyngitis [Recovered/Resolved]
  - Injection site vesicles [Not Recovered/Not Resolved]
  - Dyspepsia [Recovering/Resolving]
  - Pain [Unknown]
  - Injection site pain [Recovered/Resolved]
  - Therapeutic response shortened [Unknown]
  - Ankylosing spondylitis [Unknown]

NARRATIVE: CASE EVENT DATE: 20210101
